FAERS Safety Report 20130950 (Version 2)
Quarter: 2021Q4

REPORT INFORMATION
  Report Type: Other
  Country: RO (occurrence: RO)
  Receive Date: 20211130
  Receipt Date: 20211213
  Transmission Date: 20220304
  Serious: Yes (Other)
  Sender: FDA-Public Use
  Company Number: RO-002147023-NVSC2021RO263314

PATIENT
  Age: 60 Year
  Sex: Female

DRUGS (4)
  1. XOLAIR [Suspect]
     Active Substance: OMALIZUMAB
     Indication: Chronic spontaneous urticaria
     Dosage: 150 MG, QMO (2 T.U/MONTH FOR 6 MONTH)
     Route: 065
  2. XOLAIR [Suspect]
     Active Substance: OMALIZUMAB
     Route: 065
     Dates: start: 20211029
  3. XOLAIR [Suspect]
     Active Substance: OMALIZUMAB
     Route: 065
     Dates: start: 202111
  4. EUTHYROX [Concomitant]
     Active Substance: LEVOTHYROXINE SODIUM
     Indication: Product used for unknown indication
     Route: 065

REACTIONS (9)
  - Eye injury [Unknown]
  - Eye swelling [Unknown]
  - Feeling abnormal [Not Recovered/Not Resolved]
  - Rash [Recovered/Resolved]
  - General physical health deterioration [Not Recovered/Not Resolved]
  - Illness [Not Recovered/Not Resolved]
  - Peripheral swelling [Recovered/Resolved]
  - Drug ineffective [Unknown]
  - Dry eye [Not Recovered/Not Resolved]

NARRATIVE: CASE EVENT DATE: 20211101
